FAERS Safety Report 25870360 (Version 1)
Quarter: 2025Q4

REPORT INFORMATION
  Report Type: Spontaneous
  Country: US (occurrence: None)
  Receive Date: 20251001
  Receipt Date: 20251001
  Transmission Date: 20260118
  Serious: Yes (Other)
  Sender: FDA-CTU
  Company Number: None

PATIENT
  Age: 68 Year
  Sex: Female

DRUGS (26)
  1. DUPIXENT [Suspect]
     Active Substance: DUPILUMAB
     Indication: Chronic obstructive pulmonary disease
  2. ALLOPURINOL 100MG TABLETS [Concomitant]
  3. BUDESONIDE 0.5MG/2ML VIALS 2ML [Concomitant]
  4. ELIQUIS [Concomitant]
     Active Substance: APIXABAN
  5. FISH OIL 1 000MG CAPSULES [Concomitant]
  6. FUROSEMIDE [Concomitant]
     Active Substance: FUROSEMIDE
  7. HYDROXYZINE HCL 10MG TABLETS [Concomitant]
  8. IPRATROPI/ALB 0.5/3MG INH SL 60X3ML [Concomitant]
  9. LISINOPRIL [Concomitant]
     Active Substance: LISINOPRIL
  10. METOPROLOL SUCCINATE [Concomitant]
     Active Substance: METOPROLOL SUCCINATE
  11. METOPROLOL SUCCINATE [Concomitant]
     Active Substance: METOPROLOL SUCCINATE
  12. OMEPRAZOLE [Concomitant]
     Active Substance: OMEPRAZOLE
  13. SERTRALINE HYDROCHLORIDE [Concomitant]
     Active Substance: SERTRALINE HYDROCHLORIDE
  14. TRAMADOL HYDROCHLORIDE [Concomitant]
     Active Substance: TRAMADOL HYDROCHLORIDE
  15. VENTOLIN HFA INH W/DOS CTR 200PUFFS [Concomitant]
  16. VITAMIN D 1,000IU SOFTGELS [Concomitant]
     Dosage: OTHER FREQUENCY : EVERY OTHER WEEK ;?
     Route: 058
     Dates: start: 20250502, end: 20250917
  17. ALLOPURINOL 1 OOMG TABLETS [Concomitant]
  18. BUDESONIDE 0.5MG/2ML VIALS 2ML [Concomitant]
  19. ELIQUIS [Concomitant]
     Active Substance: APIXABAN
  20. SERTRALINE HYDROCHLORIDE [Concomitant]
     Active Substance: SERTRALINE HYDROCHLORIDE
  21. FUROSEMIDE [Concomitant]
     Active Substance: FUROSEMIDE
  22. HYDROXYZINE HCL 10MG TABLETS [Concomitant]
  23. IPRATROPI/ALB 0.5/3MG INH SL 60X3ML [Concomitant]
  24. LISINOPRIL [Concomitant]
     Active Substance: LISINOPRIL
  25. METOPROLOL SUCCINATE [Concomitant]
     Active Substance: METOPROLOL SUCCINATE
  26. OMEPRAZOLE [Concomitant]
     Active Substance: OMEPRAZOLE

REACTIONS (2)
  - Blister [None]
  - Post procedural complication [None]

NARRATIVE: CASE EVENT DATE: 20250915
